FAERS Safety Report 5454647-4 (Version None)
Quarter: 2007Q3

REPORT INFORMATION
  Report Type: 
  Country: None (occurrence: None)
  Receive Date: 20070917
  Receipt Date: 20060831
  Transmission Date: 20080115
  Serious: No
  Sender: FDA-Public Use
  Company Number: US-ASTRAZENECA-2006UW15643

PATIENT
  Age: 54 Year
  Sex: Female
  Weight: 63.6 kg

DRUGS (13)
  1. SEROQUEL [Suspect]
     Route: 048
  2. AMBIEN [Concomitant]
  3. ZOLOFT [Concomitant]
  4. ACTONEL [Concomitant]
  5. VYTORIN [Concomitant]
     Dosage: 10/40 DAILY
  6. ACTOS [Concomitant]
  7. LISINOPRIL [Concomitant]
  8. DIPROLENE [Concomitant]
  9. ALLEGRA [Concomitant]
  10. LIPITOR [Concomitant]
  11. AROMASIN [Concomitant]
  12. DIOVAN [Concomitant]
  13. PRILOSEC [Concomitant]

REACTIONS (2)
  - SLEEP DISORDER [None]
  - SLEEP TALKING [None]
